FAERS Safety Report 22615046 (Version 1)
Quarter: 2023Q2

REPORT INFORMATION
  Report Type: Report from Study
  Country: HU (occurrence: HU)
  Receive Date: 20230619
  Receipt Date: 20230619
  Transmission Date: 20230722
  Serious: Yes (Hospitalization)
  Sender: FDA-Public Use
  Company Number: HU-002147023-NVSC2023HU136081

PATIENT
  Age: 85 Year
  Sex: Female

DRUGS (1)
  1. KISQALI [Suspect]
     Active Substance: RIBOCICLIB
     Indication: Product used for unknown indication
     Dosage: UNK
     Route: 065

REACTIONS (5)
  - Femoral neck fracture [Unknown]
  - Joint injury [Unknown]
  - Fall [Unknown]
  - Head injury [Unknown]
  - Face injury [Unknown]

NARRATIVE: CASE EVENT DATE: 20230525
